FAERS Safety Report 7720228-2 (Version None)
Quarter: 2011Q3

REPORT INFORMATION
  Report Type: 
  Country: None (occurrence: None)
  Receive Date: 20110831
  Receipt Date: 20110826
  Transmission Date: 20111222
  Serious: Yes (Hospitalization, Other)
  Sender: FDA-Public Use
  Company Number: GB-PFIZER INC-2011135278

PATIENT
  Age: 46 Year
  Sex: Female

DRUGS (2)
  1. VARENICLINE TARTRATE [Suspect]
     Dosage: UNK
  2. VARENICLINE TARTRATE [Suspect]
     Indication: SMOKING CESSATION THERAPY
     Dosage: 1.0 MG, 2X/DAY
     Route: 048
     Dates: start: 20110526, end: 20110616

REACTIONS (13)
  - AGITATION [None]
  - TREMOR [None]
  - MENOPAUSE [None]
  - INSOMNIA [None]
  - DEPRESSION [None]
  - FEELING ABNORMAL [None]
  - NAUSEA [None]
  - CONFUSIONAL STATE [None]
  - ANGER [None]
  - HYPERHIDROSIS [None]
  - HOT FLUSH [None]
  - NEGATIVE THOUGHTS [None]
  - MOOD ALTERED [None]
